FAERS Safety Report 9477116 (Version 1)
Quarter: 2013Q3

REPORT INFORMATION
  Report Type: Spontaneous
  Country: US (occurrence: US)
  Receive Date: 20130826
  Receipt Date: 20130826
  Transmission Date: 20140515
  Serious: Yes (Other)
  Sender: FDA-Public Use
  Company Number: US-PFIZER INC-2013245306

PATIENT
  Age: 40 Year
  Sex: Female
  Weight: 77.1 kg

DRUGS (1)
  1. LYRICA [Suspect]
     Indication: FIBROMYALGIA
     Dosage: 150 MG, 2X/DAY
     Dates: start: 2010

REACTIONS (3)
  - Weight increased [Recovering/Resolving]
  - Fluid retention [Unknown]
  - Pain [Unknown]
